FAERS Safety Report 9798815 (Version 1)
Quarter: 2014Q1

REPORT INFORMATION
  Report Type: Spontaneous
  Country: US (occurrence: US)
  Receive Date: 20140106
  Receipt Date: 20140106
  Transmission Date: 20141002
  Serious: No
  Sender: FDA-Public Use
  Company Number: US-GILEAD-2010-0033412

PATIENT
  Sex: Male

DRUGS (12)
  1. LETAIRIS [Suspect]
     Indication: PULMONARY ARTERIAL HYPERTENSION
     Route: 048
     Dates: start: 20090313, end: 20090422
  2. NORVASC [Concomitant]
  3. ENALAPRIL [Concomitant]
  4. FUROSEMIDE [Concomitant]
  5. ASPIRIN [Concomitant]
  6. LIPITOR [Concomitant]
  7. TRAMADOL [Concomitant]
  8. TYLENOL [Concomitant]
  9. IRON [Concomitant]
  10. CALCIUM [Concomitant]
  11. POTASSIUM [Concomitant]
  12. MULTIVITAMIN [Concomitant]

REACTIONS (1)
  - Dyspnoea [Unknown]
